FAERS Safety Report 15643970 (Version 1)
Quarter: 2018Q4

REPORT INFORMATION
  Report Type: Spontaneous
  Country: DE (occurrence: DE)
  Receive Date: 20181121
  Receipt Date: 20181121
  Transmission Date: 20190205
  Serious: Yes (Disabling)
  Sender: FDA-Public Use
  Company Number: DE-BAYER-2018-213353

PATIENT
  Age: 39 Year
  Sex: Male
  Weight: 85 kg

DRUGS (2)
  1. CIPROBAY 500 MG [Suspect]
     Active Substance: CIPROFLOXACIN
     Indication: PROSTATITIS
     Dosage: 500 MG, BID
     Route: 048
     Dates: start: 201411
  2. CIPROBAY 500 MG [Suspect]
     Active Substance: CIPROFLOXACIN
     Indication: PROSTATITIS
     Dosage: 500 MG, BID
     Route: 048
     Dates: start: 1994

REACTIONS (6)
  - Performance status decreased [Not Recovered/Not Resolved]
  - Aortic dilatation [Unknown]
  - Dyspnoea [Not Recovered/Not Resolved]
  - Chest pain [Not Recovered/Not Resolved]
  - Aortic dilatation [Unknown]
  - Aortic aneurysm [Recovered/Resolved with Sequelae]

NARRATIVE: CASE EVENT DATE: 2013
